FAERS Safety Report 8199743-6 (Version None)
Quarter: 2012Q1

REPORT INFORMATION
  Report Type: 
  Country: None (occurrence: None)
  Receive Date: 20120311
  Receipt Date: 20120301
  Transmission Date: 20120608
  Serious: Yes (Hospitalization, Other)
  Sender: FDA-Public Use
  Company Number: PHEH2011US011075

PATIENT
  Sex: Female

DRUGS (1)
  1. EXTAVIA [Suspect]
     Indication: MULTIPLE SCLEROSIS
     Dosage: 0.25 MG, QOD
     Route: 058

REACTIONS (14)
  - WOUND [None]
  - VERTIGO [None]
  - OTOSALPINGITIS [None]
  - MULTIPLE SCLEROSIS RELAPSE [None]
  - BLINDNESS [None]
  - SCOTOMA [None]
  - TINNITUS [None]
  - NYSTAGMUS [None]
  - VISUAL ACUITY REDUCED [None]
  - EYE PAIN [None]
  - FATIGUE [None]
  - MEMORY IMPAIRMENT [None]
  - SINUSITIS [None]
  - HYPERSENSITIVITY [None]
